FAERS Safety Report 6189969-5 (Version None)
Quarter: 2009Q2

REPORT INFORMATION
  Report Type: 
  Country: None (occurrence: None)
  Receive Date: 20090514
  Receipt Date: 20090506
  Transmission Date: 20091009
  Serious: Yes (Other)
  Sender: FDA-Public Use
  Company Number: PHHY2009NZ17216

PATIENT
  Age: 26 Year
  Sex: Female

DRUGS (4)
  1. CYCLOSPORINE [Suspect]
     Indication: BONE MARROW TRANSPLANT
     Dosage: UNK
  2. CYCLOSPORINE [Suspect]
     Indication: PROPHYLAXIS AGAINST GRAFT VERSUS HOST DISEASE
  3. ANTI-THYMOCYTE GLOBULIN NOS [Concomitant]
  4. CYCLOPHOSPHAMIDE [Concomitant]

REACTIONS (18)
  - ACUTE GRAFT VERSUS HOST DISEASE IN INTESTINE [None]
  - ACUTE GRAFT VERSUS HOST DISEASE IN SKIN [None]
  - APHASIA [None]
  - BLOOD LACTATE DEHYDROGENASE INCREASED [None]
  - CARDIOMYOPATHY [None]
  - CEREBRAL HAEMORRHAGE [None]
  - CONVULSION [None]
  - CYTOMEGALOVIRUS INFECTION [None]
  - DEPRESSED LEVEL OF CONSCIOUSNESS [None]
  - HAEMOLYSIS [None]
  - HAPTOGLOBIN DECREASED [None]
  - HEMIPLEGIA [None]
  - HYPERTENSION [None]
  - MICROANGIOPATHY [None]
  - RED BLOOD CELL SCHISTOCYTES PRESENT [None]
  - RENAL FAILURE [None]
  - THROMBOCYTOPENIA [None]
  - TRANSFUSION [None]
